FAERS Safety Report 10179582 (Version 2)
Quarter: 2014Q2

REPORT INFORMATION
  Report Type: Spontaneous
  Country: US (occurrence: US)
  Receive Date: 20140519
  Receipt Date: 20140606
  Transmission Date: 20141212
  Serious: No
  Sender: FDA-Public Use
  Company Number: US-PFIZER INC-2014136299

PATIENT
  Age: 57 Year
  Sex: Female
  Weight: 130.16 kg

DRUGS (2)
  1. CELEBREX [Suspect]
     Indication: ARTHRITIS
     Dosage: 200 MG, DAILY
     Dates: start: 2012
  2. CELEBREX [Suspect]
     Indication: FIBROMYALGIA

REACTIONS (1)
  - Drug effect incomplete [Unknown]
